FAERS Safety Report 6238717-9 (Version None)
Quarter: 2009Q2

REPORT INFORMATION
  Report Type: 
  Country: None (occurrence: None)
  Receive Date: 20090622
  Receipt Date: 20090616
  Transmission Date: 20091009
  Serious: Yes (Death)
  Sender: FDA-Public Use
  Company Number: JP-ASTRAZENECA-2009AP03315

PATIENT
  Age: 7 Year
  Sex: Female

DRUGS (1)
  1. XYLOCAINE [Suspect]
     Indication: MYOCLONIC EPILEPSY
     Dosage: DOSE UNKNOWN
     Route: 048

REACTIONS (1)
  - DEATH [None]
